FAERS Safety Report 9415657 (Version 1)
Quarter: 2013Q3

REPORT INFORMATION
  Report Type: Spontaneous
  Country: US (occurrence: US)
  Receive Date: 20130723
  Receipt Date: 20130723
  Transmission Date: 20140515
  Serious: Yes (Other)
  Sender: FDA-Public Use
  Company Number: CHPA2013US011476

PATIENT
  Age: 17 Year
  Sex: Male

DRUGS (1)
  1. EXCEDRIN MIGRAINE [Suspect]
     Indication: MIGRAINE
     Dosage: 2 CAPLETS, PRN
     Route: 048
     Dates: start: 2011, end: 2013

REACTIONS (3)
  - Coeliac disease [Unknown]
  - Incorrect dose administered [Unknown]
  - Prescribed overdose [Unknown]
